FAERS Safety Report 12641963 (Version 1)
Quarter: 2016Q3

REPORT INFORMATION
  Report Type: Spontaneous
  Country: US (occurrence: NL)
  Receive Date: 20160810
  Receipt Date: 20160810
  Transmission Date: 20161109
  Serious: No
  Sender: FDA-Public Use
  Company Number: US-EISAI MEDICAL RESEARCH-EC-2016-019119

PATIENT
  Age: 18 Year
  Sex: Female

DRUGS (7)
  1. PERAMPANEL [Suspect]
     Active Substance: PERAMPANEL
     Route: 048
  2. PERAMPANEL [Suspect]
     Active Substance: PERAMPANEL
     Indication: LAFORA^S MYOCLONIC EPILEPSY
     Route: 048
  3. PERAMPANEL [Suspect]
     Active Substance: PERAMPANEL
     Route: 048
  4. VALPROIC ACID. [Concomitant]
     Active Substance: VALPROIC ACID
     Indication: LAFORA^S MYOCLONIC EPILEPSY
     Dosage: UNKNOWN
  5. PHENOBARBITAL. [Concomitant]
     Active Substance: PHENOBARBITAL
     Indication: PRODUCT USED FOR UNKNOWN INDICATION
     Dosage: UNKNOWN
  6. PERAMPANEL [Suspect]
     Active Substance: PERAMPANEL
     Route: 048
  7. PERAMPANEL [Suspect]
     Active Substance: PERAMPANEL
     Route: 048

REACTIONS (2)
  - Generalised tonic-clonic seizure [Unknown]
  - Visual impairment [Unknown]
